FAERS Safety Report 9526138 (Version 1)
Quarter: 2013Q3

REPORT INFORMATION
  Report Type: Report from Study
  Country: US (occurrence: US)
  Receive Date: 20130916
  Receipt Date: 20130916
  Transmission Date: 20140515
  Serious: Yes (Other)
  Sender: FDA-Public Use
  Company Number: US-ROCHE-1274279

PATIENT
  Age: 61 Year
  Sex: Female

DRUGS (4)
  1. HERCEPTIN [Suspect]
     Indication: BREAST CANCER
     Dosage: ADJUVANT DOSING
     Route: 065
  2. CYTOXAN [Concomitant]
     Dosage: ADJUVANT
     Route: 065
  3. TAXOL [Concomitant]
     Dosage: ADJUVANT
     Route: 065
  4. NOLVADEX [Concomitant]
     Dosage: ADJUVANT
     Route: 065

REACTIONS (1)
  - Cerebrovascular accident [Unknown]
